FAERS Safety Report 8066961-7 (Version None)
Quarter: 2012Q1

REPORT INFORMATION
  Report Type: 
  Country: None (occurrence: None)
  Receive Date: 20120124
  Receipt Date: 20120113
  Transmission Date: 20120608
  Serious: Yes (Hospitalization, Disabling)
  Sender: FDA-Public Use
  Company Number: US-MERCK-1106USA01826

PATIENT
  Age: 64 Year
  Sex: Female
  Weight: 94 kg

DRUGS (11)
  1. FOSAMAX [Suspect]
     Route: 048
     Dates: start: 20050301, end: 20070601
  2. FOSAMAX [Suspect]
     Route: 048
     Dates: start: 19980101, end: 20050301
  3. BONIVA [Concomitant]
     Indication: OSTEOPOROSIS PROPHYLAXIS
     Route: 048
     Dates: start: 20070606, end: 20080401
  4. RECLAST [Concomitant]
     Indication: OSTEOPOROSIS PROPHYLAXIS
     Route: 041
     Dates: start: 20080422, end: 20090427
  5. FOSAMAX [Suspect]
     Route: 048
     Dates: start: 19980101, end: 20050301
  6. FOSAMAX [Suspect]
     Route: 048
     Dates: start: 20050301, end: 20070601
  7. FOSAMAX [Suspect]
     Indication: OSTEOPOROSIS PROPHYLAXIS
     Route: 048
     Dates: start: 19980101, end: 20070823
  8. BONIVA [Concomitant]
     Indication: OSTEOPOROSIS
     Route: 048
     Dates: start: 20070606, end: 20080401
  9. RECLAST [Concomitant]
     Indication: OSTEOPOROSIS
     Route: 041
     Dates: start: 20080422, end: 20090427
  10. DIDRONEL [Concomitant]
     Indication: OSTEOPOROSIS PROPHYLAXIS
     Route: 065
  11. FOSAMAX [Suspect]
     Indication: OSTEOPOROSIS
     Route: 048
     Dates: start: 19980101, end: 20070823

REACTIONS (29)
  - FALL [None]
  - CARPAL TUNNEL SYNDROME [None]
  - BURSITIS [None]
  - HIATUS HERNIA [None]
  - CATARACT [None]
  - DEVICE FAILURE [None]
  - IMPAIRED HEALING [None]
  - MUSCULOSKELETAL PAIN [None]
  - MYOFASCIAL PAIN SYNDROME [None]
  - FOOT FRACTURE [None]
  - GASTROINTESTINAL STROMAL TUMOUR [None]
  - MIGRAINE [None]
  - WEIGHT INCREASED [None]
  - PAIN IN EXTREMITY [None]
  - ARTHRALGIA [None]
  - HYPERLIPIDAEMIA [None]
  - SPINAL CLAUDICATION [None]
  - MASS [None]
  - TENDON DISORDER [None]
  - HYPERTENSION [None]
  - GASTROOESOPHAGEAL REFLUX DISEASE [None]
  - SPINAL OSTEOARTHRITIS [None]
  - BACK PAIN [None]
  - CONSTIPATION [None]
  - FEMUR FRACTURE [None]
  - OBESITY [None]
  - LIPOMA [None]
  - SCIATICA [None]
  - FRACTURE DELAYED UNION [None]
